FAERS Safety Report 5884482-4 (Version None)
Quarter: 2008Q3

REPORT INFORMATION
  Report Type: 
  Country: None (occurrence: None)
  Receive Date: 20080916
  Receipt Date: 20080909
  Transmission Date: 20090109
  Serious: Yes (Hospitalization)
  Sender: FDA-Public Use
  Company Number: FR-WYE-G02131708

PATIENT
  Sex: Male

DRUGS (4)
  1. EFFEXOR [Suspect]
     Dosage: OVERDOSE AMOUNT = 30 DOSES OF EFFEXOR (FORM AND STRENGTH UNSPECIFED)
     Route: 048
     Dates: start: 20080605, end: 20080605
  2. CANNABIS [Concomitant]
     Dosage: UNKNOWN
  3. ETHANOL [Concomitant]
     Dosage: UNKNOWN
     Route: 048
  4. TRANXENE [Suspect]
     Dosage: OVERDOSE AMOUNT = 100 MG
     Route: 048
     Dates: start: 20080605, end: 20080605

REACTIONS (3)
  - COMA [None]
  - INTENTIONAL OVERDOSE [None]
  - SUICIDE ATTEMPT [None]
